FAERS Safety Report 4873665-8 (Version None)
Quarter: 2006Q1

REPORT INFORMATION
  Report Type: 
  Country: None (occurrence: None)
  Receive Date: 20060103
  Receipt Date: 20060103
  Transmission Date: 20060701
  Serious: Yes (Life-Threatening, Other)
  Sender: FDA-Public Use
  Company Number: None

PATIENT
  Age: 43 Year
  Sex: Female
  Weight: 48.9885 kg

DRUGS (1)
  1. RENOVA [Suspect]
     Indication: EPHELIDES
     Dosage: PEA SIZE OF CREAM 1 NIGHTLY   1 TIME AT NIGHT
     Dates: start: 19990515, end: 19991120

REACTIONS (17)
  - BLISTER [None]
  - CAUSTIC INJURY [None]
  - COMPUTERISED TOMOGRAM ABNORMAL [None]
  - DYSPNOEA [None]
  - EYE SWELLING [None]
  - EYELID FUNCTION DISORDER [None]
  - INFECTION PARASITIC [None]
  - MENTAL DISORDER [None]
  - PHARMACEUTICAL PRODUCT COMPLAINT [None]
  - SKIN DISCOLOURATION [None]
  - SKIN DISORDER [None]
  - SKIN EXFOLIATION [None]
  - SKIN LESION [None]
  - SWELLING FACE [None]
  - THINKING ABNORMAL [None]
  - TOOTH DISORDER [None]
  - VISION BLURRED [None]
